FAERS Safety Report 18480943 (Version 1)
Quarter: 2020Q4

REPORT INFORMATION
  Report Type: Spontaneous
  Country: US (occurrence: US)
  Receive Date: 20201109
  Receipt Date: 20201109
  Transmission Date: 20210114
  Serious: Yes (Other)
  Sender: FDA-Public Use
  Company Number: US-JNJFOC-A-NJ2020-207620

PATIENT
  Age: 2 Year
  Sex: Female
  Weight: 9.53 kg

DRUGS (7)
  1. SILDENAFIL. [Concomitant]
     Active Substance: SILDENAFIL
     Indication: PULMONARY HYPERTENSION
     Route: 065
  2. TRACLEER [Suspect]
     Active Substance: BOSENTAN
     Indication: PULMONARY ARTERIAL HYPERTENSION
     Dosage: 16 MG, BID
     Route: 048
     Dates: start: 20191021
  3. ALDACTONE [Concomitant]
     Active Substance: SPIRONOLACTONE
     Indication: DIURETIC THERAPY
     Dosage: 1.8 ML (9MG) BID
     Route: 065
  4. DIURIL [Concomitant]
     Active Substance: CHLOROTHIAZIDE
     Indication: DIURETIC THERAPY
     Route: 065
  5. ASA [Concomitant]
     Active Substance: ASPIRIN
  6. ENALAPRIL [Concomitant]
     Active Substance: ENALAPRIL
     Indication: HYPERTENSION
     Route: 065
  7. TORSEMIDE. [Concomitant]
     Active Substance: TORSEMIDE
     Indication: DIURETIC THERAPY
     Route: 065

REACTIONS (4)
  - Catheterisation cardiac [Recovered/Resolved]
  - Off label use [Unknown]
  - Product use issue [Unknown]
  - Aortic stent insertion [Recovered/Resolved]

NARRATIVE: CASE EVENT DATE: 20200709
